FAERS Safety Report 7505926-8 (Version None)
Quarter: 2011Q2

REPORT INFORMATION
  Report Type: 
  Country: None (occurrence: None)
  Receive Date: 20110526
  Receipt Date: 20110519
  Transmission Date: 20111010
  Serious: Yes (Hospitalization, Other)
  Sender: FDA-Public Use
  Company Number: US-ROCHE-645553

PATIENT
  Sex: Male

DRUGS (36)
  1. FUROSEMIDE [Concomitant]
  2. DIPHENHYDRAMINE HCL [Concomitant]
  3. PROGRAF [Concomitant]
  4. SYNTHROID [Concomitant]
  5. DIVALPROEX SODIUM [Concomitant]
  6. THYMOGLOBULIN [Concomitant]
  7. TERAZOSIN HYDROCHLORIDE [Concomitant]
  8. PANTOPRAZOLE SODIUM [Concomitant]
  9. LEVOFLOXACIN [Concomitant]
  10. ACETAMINOPHEN [Concomitant]
  11. AMBIEN [Concomitant]
  12. TOLTERODINE TARTRATE [Concomitant]
  13. MAGNESIUM OXIDE [Concomitant]
  14. VALCYTE [Suspect]
     Route: 048
     Dates: start: 20090215, end: 20090429
  15. IMURAN [Suspect]
     Route: 065
  16. TEMAZEPAM [Concomitant]
  17. PREDNISONE [Concomitant]
  18. MYCOPHENOLATE MOFETIL [Concomitant]
  19. ZOFRAN [Concomitant]
  20. SEPTRA [Suspect]
     Route: 065
  21. LEVOTHYROXINE SODIUM [Concomitant]
  22. MESALAMINE [Concomitant]
  23. ONDANSETRON [Concomitant]
  24. METOPROLOL TARTRATE [Concomitant]
  25. MORPHINE SULFATE [Concomitant]
  26. BUMETANIDE [Concomitant]
  27. VALPROIC ACID [Concomitant]
  28. LANTHANUM CARBONATE [Concomitant]
  29. FOSAMAX [Concomitant]
  30. NEPHROCAPS [Concomitant]
  31. OMEPRAZOLE [Concomitant]
  32. OMEPRAZOLE [Concomitant]
  33. ALBUMIN (HUMAN) [Concomitant]
  34. HYDRALAZINE HCL [Concomitant]
  35. HALOPERIDOL [Concomitant]
  36. TERAZOSIN HYDROCHLORIDE [Concomitant]

REACTIONS (27)
  - GRAFT DYSFUNCTION [None]
  - VOMITING [None]
  - INCISION SITE CELLULITIS [None]
  - FAILURE TO THRIVE [None]
  - RENAL TUBULAR NECROSIS [None]
  - HYPERKALAEMIA [None]
  - NAUSEA [None]
  - HYPOMAGNESAEMIA [None]
  - EPISTAXIS [None]
  - CROHN'S DISEASE [None]
  - STAPHYLOCOCCAL INFECTION [None]
  - CLOSTRIDIUM DIFFICILE COLITIS [None]
  - HYPERTONIC BLADDER [None]
  - HYPOKALAEMIA [None]
  - CANDIDIASIS [None]
  - DECREASED APPETITE [None]
  - BLOOD THYROID STIMULATING HORMONE INCREASED [None]
  - OROPHARYNGEAL PAIN [None]
  - BACK PAIN [None]
  - HYPOALBUMINAEMIA [None]
  - ANAEMIA [None]
  - DIVERTICULUM [None]
  - AGITATION [None]
  - BLOOD CREATININE INCREASED [None]
  - ENCEPHALOPATHY [None]
  - PANCREATITIS [None]
  - SERUM FERRITIN INCREASED [None]
